FAERS Safety Report 6810333-7 (Version None)
Quarter: 2010Q2

REPORT INFORMATION
  Report Type: 
  Country: None (occurrence: None)
  Receive Date: 20100630
  Receipt Date: 20100617
  Transmission Date: 20101027
  Serious: Yes (Hospitalization, Other)
  Sender: FDA-Public Use
  Company Number: PHHY2010TW37679

PATIENT
  Sex: Female

DRUGS (2)
  1. TRILEPTAL [Suspect]
     Indication: EPILEPSY
     Dosage: 300 MG, BID
     Route: 048
     Dates: start: 20100407, end: 20100520
  2. AMLODIPINE BESYLATE [Concomitant]
     Dosage: UNK,UNK
     Dates: end: 20100401

REACTIONS (7)
  - ALANINE AMINOTRANSFERASE INCREASED [None]
  - ASPARTATE AMINOTRANSFERASE INCREASED [None]
  - BLOOD CREATINE PHOSPHOKINASE INCREASED [None]
  - CARDIAC FAILURE [None]
  - PERICARDIAL EFFUSION [None]
  - RHABDOMYOLYSIS [None]
  - TRAUMATIC LUNG INJURY [None]
